FAERS Safety Report 6644475-6 (Version None)
Quarter: 2010Q1

REPORT INFORMATION
  Report Type: 
  Country: None (occurrence: None)
  Receive Date: 20100322
  Receipt Date: 20100318
  Transmission Date: 20100710
  Serious: Yes (Other)
  Sender: FDA-Public Use
  Company Number: KR-ROCHE-691764

PATIENT
  Age: 81 Year
  Sex: Female

DRUGS (2)
  1. BONIVA [Suspect]
     Indication: OSTEOPOROSIS
     Route: 048
  2. BONIVA [Suspect]
     Route: 048
     Dates: start: 20100308

REACTIONS (3)
  - CHILLS [None]
  - MYALGIA [None]
  - PYREXIA [None]
